FAERS Safety Report 18133047 (Version 1)
Quarter: 2020Q3

REPORT INFORMATION
  Report Type: Spontaneous
  Country: PL (occurrence: PL)
  Receive Date: 20200811
  Receipt Date: 20200811
  Transmission Date: 20201103
  Serious: Yes (Life-Threatening, Hospitalization, Other)
  Sender: FDA-Public Use
  Company Number: PL-HIKMA PHARMACEUTICALS USA INC.-PL-H14001-20-51858

PATIENT
  Age: 28 Year
  Sex: Male

DRUGS (1)
  1. AMOXICILLIN, CLAVULANIC ACID [Suspect]
     Active Substance: AMOXICILLIN\CLAVULANIC ACID
     Indication: PANCREATITIS ACUTE
     Dosage: UNKNOWN
     Route: 065

REACTIONS (8)
  - Septic shock [Recovering/Resolving]
  - Clostridium difficile infection [Recovering/Resolving]
  - Ileus paralytic [Recovering/Resolving]
  - Escherichia infection [Recovering/Resolving]
  - Megacolon [Recovering/Resolving]
  - Systemic inflammatory response syndrome [Recovering/Resolving]
  - Acute kidney injury [Recovering/Resolving]
  - Respiratory failure [Recovering/Resolving]
